FAERS Safety Report 6564585 (Version 5)
Quarter: 2020Q3

REPORT INFORMATION
  Report Type: Report from Study
  Country: US (occurrence: US)
  Receive Date: 20080228
  Receipt Date: 20121211
  Transmission Date: 20201105
  Serious: Yes (Death, Life-Threatening, Hospitalization, Disabling, Other)
  Sender: FDA-Public Use
  Company Number: US-JNJFOC-20080205326

PATIENT
  Age: 57 Year
  Sex: Male
  Weight: 92.99 kg

DRUGS (6)
  1. NORVIR [Suspect]
     Active Substance: RITONAVIR
     Indication: HIV INFECTION
     Route: 048
     Dates: start: 20060526
  2. MK?0518 [Suspect]
     Active Substance: RALTEGRAVIR POTASSIUM
     Indication: HIV INFECTION
     Route: 048
     Dates: start: 20071107
  3. PREZISTA [Suspect]
     Active Substance: DARUNAVIR ETHANOLATE
     Indication: HIV INFECTION
     Route: 048
     Dates: start: 20060526
  4. ETRAVIRINE [Suspect]
     Active Substance: ETRAVIRINE
     Route: 048
  5. TMC125 [Suspect]
     Active Substance: ETRAVIRINE
     Indication: HIV INFECTION
     Route: 048
     Dates: start: 20071107
  6. FUZEON [Suspect]
     Active Substance: ENFUVIRTIDE
     Indication: HIV INFECTION
     Route: 058
     Dates: start: 20060526

REACTIONS (2)
  - Pancreatitis [Fatal]
  - Hepatic failure [Fatal]

NARRATIVE: CASE EVENT DATE: 20071217
